FAERS Safety Report 10268150 (Version 2)
Quarter: 2014Q2

REPORT INFORMATION
  Report Type: Spontaneous
  Country: US (occurrence: US)
  Receive Date: 20140630
  Receipt Date: 20140630
  Transmission Date: 20141212
  Serious: No
  Sender: FDA-Public Use
  Company Number: US-ASTRAZENECA-2004UW13200

PATIENT
  Age: 70 Year
  Sex: Female
  Weight: 73 kg

DRUGS (3)
  1. CRESTOR [Suspect]
     Indication: BLOOD CHOLESTEROL ABNORMAL
     Route: 048
  2. CRESTOR [Suspect]
     Indication: BLOOD CHOLESTEROL ABNORMAL
     Route: 048
     Dates: start: 2004, end: 201406
  3. TOPROL XL [Suspect]
     Indication: ARRHYTHMIA
     Route: 048

REACTIONS (6)
  - Chromaturia [Unknown]
  - Renal disorder [Unknown]
  - Blood urine present [Unknown]
  - Myalgia [Unknown]
  - Diabetes mellitus [Unknown]
  - Off label use [Unknown]
